FAERS Safety Report 4297681-2 (Version None)
Quarter: 2004Q1

REPORT INFORMATION
  Report Type: 
  Country: None (occurrence: None)
  Receive Date: 20040213
  Receipt Date: 20040202
  Transmission Date: 20041129
  Serious: Yes (Hospitalization)
  Sender: FDA-Public Use
  Company Number: 04P-087-0249391-00

PATIENT
  Age: 71 Year
  Sex: Male
  Weight: 65 kg

DRUGS (9)
  1. VASOLAN (ISOPTIN) (VERAPAMIL) [Suspect]
     Indication: DRUG USE FOR UNKNOWN INDICATION
  2. VALSARTAN [Suspect]
     Indication: HYPERTENSION
     Dosage: 160 MG, 1 IN 1 D, ORAL
     Route: 048
     Dates: start: 20030515, end: 20030630
  3. CARVEDILOL [Suspect]
     Indication: CARDIAC FAILURE CONGESTIVE
     Dates: start: 20030515, end: 20030630
  4. EFONIDIPINE HYDROCHLORIDE [Concomitant]
  5. FUROSEMIDE [Concomitant]
  6. DOXAZOSIN MESYLATE [Concomitant]
  7. ALFACALCIDOL [Concomitant]
  8. FAMOTIDINE [Concomitant]
  9. MECOBALAMIN [Concomitant]

REACTIONS (6)
  - ANGINA PECTORIS [None]
  - BREAST DISCOMFORT [None]
  - CARDIAC FAILURE CONGESTIVE [None]
  - DIALYSIS [None]
  - HYPERTENSION [None]
  - SHOCK [None]
